FAERS Safety Report 5756515-7 (Version None)
Quarter: 2008Q2

REPORT INFORMATION
  Report Type: 
  Country: None (occurrence: None)
  Receive Date: 20080603
  Receipt Date: 20080523
  Transmission Date: 20081010
  Serious: Yes (Death, Hospitalization)
  Sender: FDA-Public Use
  Company Number: JP-JNJFOC-20071107605

PATIENT
  Sex: Female
  Weight: 37 kg

DRUGS (4)
  1. ITRIZOLE [Suspect]
     Route: 041
  2. ITRIZOLE [Suspect]
     Indication: CANDIDA SEROLOGY POSITIVE
     Route: 041
  3. FLUMARIN [Concomitant]
     Route: 042
  4. TIENAM [Concomitant]
     Route: 042

REACTIONS (5)
  - ALANINE AMINOTRANSFERASE INCREASED [None]
  - ASPARTATE AMINOTRANSFERASE INCREASED [None]
  - BLOOD BILIRUBIN INCREASED [None]
  - CERVIX CARCINOMA [None]
  - HEPATIC FAILURE [None]
